FAERS Safety Report 8866245 (Version 6)
Quarter: 2013Q2

REPORT INFORMATION
  Report Type: Spontaneous
  Country: US (occurrence: US)
  Receive Date: 20121025
  Receipt Date: 20130515
  Transmission Date: 20140414
  Serious: Yes (Hospitalization, Other)
  Sender: FDA-Public Use
  Company Number: US-009507513-1210USA009018

PATIENT
  Sex: Female
  Weight: 68.27 kg

DRUGS (2)
  1. NUVARING [Suspect]
     Indication: CONTRACEPTION
     Dosage: UNK
     Route: 067
     Dates: start: 200510, end: 200910
  2. NUVARING [Suspect]
     Indication: MENORRHAGIA

REACTIONS (20)
  - Abortion spontaneous [Recovered/Resolved]
  - Pulmonary embolism [Unknown]
  - Unintended pregnancy [Recovered/Resolved]
  - Lung disorder [Unknown]
  - Drug abuse [Recovered/Resolved]
  - Depression [Unknown]
  - Asthma [Unknown]
  - Influenza [Unknown]
  - Off label use [Recovered/Resolved]
  - Bipolar disorder [Unknown]
  - Urinary tract infection [Unknown]
  - Anxiety [Unknown]
  - Cardiac murmur [Unknown]
  - Road traffic accident [Unknown]
  - Upper respiratory tract infection [Unknown]
  - Substance use [Unknown]
  - Headache [Unknown]
  - Victim of crime [Unknown]
  - Contusion [Unknown]
  - Uterine dilation and curettage [Recovered/Resolved]
